FAERS Safety Report 11815137 (Version 1)
Quarter: 2015Q4

REPORT INFORMATION
  Report Type: Spontaneous
  Country: US (occurrence: US)
  Receive Date: 20151209
  Receipt Date: 20151209
  Transmission Date: 20160305
  Serious: No
  Sender: FDA-Public Use
  Company Number: US-SA-2015SA172025

PATIENT
  Age: 68 Year
  Sex: Male

DRUGS (17)
  1. TOUJEO [Suspect]
     Active Substance: INSULIN GLARGINE
     Indication: DIABETES MELLITUS
     Dosage: DOSE:62 UNIT(S)
     Route: 065
     Dates: start: 201510, end: 201510
  2. LISINOPRIL. [Concomitant]
     Active Substance: LISINOPRIL
  3. PRAVASTATIN [Concomitant]
     Active Substance: PRAVASTATIN\PRAVASTATIN SODIUM
     Dates: start: 2012
  4. CLONAZEPAM. [Concomitant]
     Active Substance: CLONAZEPAM
  5. TOUJEO [Suspect]
     Active Substance: INSULIN GLARGINE
     Indication: DIABETES MELLITUS
     Dosage: DOSE:58 UNIT(S)
     Route: 065
     Dates: start: 201510, end: 201510
  6. LANTUS [Concomitant]
     Active Substance: INSULIN GLARGINE
  7. TORSEMIDE. [Concomitant]
     Active Substance: TORSEMIDE
  8. OMEPRAZOLE. [Concomitant]
     Active Substance: OMEPRAZOLE
  9. SOLOSTAR [Concomitant]
     Active Substance: DEVICE
     Indication: DIABETES MELLITUS
     Dates: start: 201510, end: 201510
  10. LANTUS [Concomitant]
     Active Substance: INSULIN GLARGINE
     Dosage: DOSE:58 UNIT(S)
  11. ALLOPURINOL. [Concomitant]
     Active Substance: ALLOPURINOL
  12. TAMSULOSIN [Concomitant]
     Active Substance: TAMSULOSIN
  13. GABAPENTIN. [Concomitant]
     Active Substance: GABAPENTIN
  14. METOPROLOL [Concomitant]
     Active Substance: METOPROLOL
  15. MEXILETINE [Concomitant]
     Active Substance: MEXILETINE
     Dosage: 150 MG, 3 TIMES PER DAY
  16. DULOXETINE. [Concomitant]
     Active Substance: DULOXETINE
  17. SOLOSTAR [Concomitant]
     Active Substance: DEVICE
     Indication: DIABETES MELLITUS
     Dates: start: 201510, end: 201510

REACTIONS (6)
  - Odynophagia [Recovered/Resolved]
  - Blood glucose increased [Unknown]
  - Chest discomfort [Recovered/Resolved]
  - Dyspnoea [Recovered/Resolved]
  - Myalgia [Recovered/Resolved]
  - Dysphagia [Recovered/Resolved]

NARRATIVE: CASE EVENT DATE: 201510
